FAERS Safety Report 5781788-4 (Version None)
Quarter: 2008Q2

REPORT INFORMATION
  Report Type: 
  Country: None (occurrence: None)
  Receive Date: 20080623
  Receipt Date: 20070924
  Transmission Date: 20081010
  Serious: No
  Sender: FDA-Public Use
  Company Number: US-ASTRAZENECA-2007UW22383

PATIENT
  Age: 78 Year
  Sex: Female
  Weight: 77.1 kg

DRUGS (7)
  1. RHINOCORT [Suspect]
     Indication: SINUSITIS
     Route: 045
     Dates: start: 20070901
  2. COUMADIN [Concomitant]
  3. POTASSIUM CHLORIDE [Concomitant]
  4. LASIX [Concomitant]
  5. ESTRADIOL [Concomitant]
  6. THYROID MEDICINE [Concomitant]
  7. FOLIC ACID [Concomitant]

REACTIONS (1)
  - BLOOD GLUCOSE INCREASED [None]
